FAERS Safety Report 7624543-2 (Version None)
Quarter: 2011Q3

REPORT INFORMATION
  Report Type: 
  Country: None (occurrence: None)
  Receive Date: 20110720
  Receipt Date: 20110713
  Transmission Date: 20111222
  Serious: Yes (Hospitalization, Other)
  Sender: FDA-Public Use
  Company Number: GB-PFIZER INC-2011104458

PATIENT
  Age: 36 Year
  Sex: Male
  Weight: 86 kg

DRUGS (2)
  1. VARENICLINE TARTRATE [Suspect]
     Indication: SMOKING CESSATION THERAPY
     Dosage: 1 MG, 2X/DAY
     Route: 048
     Dates: start: 20101209, end: 20110106
  2. BETAHISTINE [Concomitant]
     Indication: DIZZINESS
     Dosage: 8 MG, 3X/DAY
     Route: 048
     Dates: start: 20101206

REACTIONS (11)
  - INTENTIONAL OVERDOSE [None]
  - PHYSICAL ASSAULT [None]
  - LOSS OF EMPLOYMENT [None]
  - ANXIETY [None]
  - SOMNOLENCE [None]
  - ALCOHOL USE [None]
  - DIVORCED [None]
  - SUICIDE ATTEMPT [None]
  - BIPOLAR DISORDER [None]
  - FEELING ABNORMAL [None]
  - DEPRESSED MOOD [None]
